FAERS Safety Report 6075136-2 (Version None)
Quarter: 2009Q1

REPORT INFORMATION
  Report Type: 
  Country: None (occurrence: None)
  Receive Date: 20090212
  Receipt Date: 20090202
  Transmission Date: 20090719
  Serious: Yes (Other)
  Sender: FDA-Public Use
  Company Number: US-BIOGENIDEC-2009BI003859

PATIENT
  Sex: Male

DRUGS (1)
  1. TYSABRI [Suspect]
     Indication: MULTIPLE SCLEROSIS
     Dates: start: 20080916

REACTIONS (4)
  - BACK PAIN [None]
  - CONVULSION [None]
  - NEURALGIA [None]
  - UPPER RESPIRATORY TRACT INFECTION [None]
